FAERS Safety Report 9170987 (Version 1)
Quarter: 2013Q1

REPORT INFORMATION
  Report Type: Report from Study
  Country: US (occurrence: US)
  Receive Date: 20130319
  Receipt Date: 20130319
  Transmission Date: 20140127
  Serious: No
  Sender: FDA-Public Use
  Company Number: US-009507513-1303USA007689

PATIENT
  Sex: Male

DRUGS (6)
  1. BOCEPREVIR [Suspect]
     Dosage: UNK
     Dates: start: 20120906
  2. PEGINTERFERON ALFA-2A [Suspect]
     Indication: HEPATITIS C
     Dosage: 180 MICROGRAM, QW
     Route: 058
     Dates: start: 20120809
  3. PEGINTERFERON ALFA-2A [Suspect]
     Dosage: 135 MG, QW
     Route: 058
  4. RIBAVIRIN [Suspect]
     Indication: HEPATITIS C
     Dosage: IN DIVIDED DOSES (1200 MG,1 IN 1 DAY)
     Route: 048
     Dates: start: 20120809
  5. RIBAVIRIN [Suspect]
     Dosage: IN DIVIDED DOSES (DAILY)
     Route: 048
  6. PROMETHAZINE [Concomitant]
     Indication: NAUSEA

REACTIONS (12)
  - Tremor [Unknown]
  - Nausea [Unknown]
  - Anaemia [Unknown]
  - Abdominal pain lower [Unknown]
  - Diarrhoea [Unknown]
  - Flatulence [Unknown]
  - Fatigue [Unknown]
  - White blood cell count decreased [Unknown]
  - Fatigue [Unknown]
  - Abdominal pain [Unknown]
  - Chills [Unknown]
  - Pyrexia [Unknown]
